FAERS Safety Report 18817496 (Version 2)
Quarter: 2022Q1

REPORT INFORMATION
  Report Type: Report from Study
  Country: US (occurrence: US)
  Receive Date: 20210201
  Receipt Date: 20220114
  Transmission Date: 20220424
  Serious: Yes (Other)
  Sender: FDA-Public Use
  Company Number: US-REGENERON PHARMACEUTICALS, INC.-2021-15992

PATIENT
  Age: 67 Year
  Sex: Male

DRUGS (1)
  1. CASIRIVIMAB\IMDEVIMAB [Suspect]
     Active Substance: CASIRIVIMAB\IMDEVIMAB
     Indication: COVID-19
     Dosage: 2400 MG, SINGLE
     Route: 042
     Dates: start: 20210120, end: 20210120

REACTIONS (7)
  - Loss of consciousness [Unknown]
  - Chills [Unknown]
  - Tremor [Unknown]
  - Nausea [Unknown]
  - Fall [Unknown]
  - Fatigue [Unknown]
  - Bone contusion [Unknown]

NARRATIVE: CASE EVENT DATE: 20210120
